FAERS Safety Report 4782051-0 (Version None)
Quarter: 2005Q3

REPORT INFORMATION
  Report Type: 
  Country: None (occurrence: None)
  Receive Date: 20050914
  Receipt Date: 20040818
  Transmission Date: 20060218
  Serious: Yes (Hospitalization, Other)
  Sender: FDA-Public Use
  Company Number: 163-20785-04080374

PATIENT
  Age: 54 Year
  Sex: Male
  Weight: 89 kg

DRUGS (6)
  1. THALOMID [Suspect]
     Indication: NON-SMALL CELL LUNG CANCER
     Dosage: 200 MG, DAILY, ORAL; 150 MG, DAILY, ORAL
     Route: 048
     Dates: start: 20040714, end: 20040909
  2. THALOMID [Suspect]
     Indication: NON-SMALL CELL LUNG CANCER
     Dosage: 200 MG, DAILY, ORAL; 150 MG, DAILY, ORAL
     Route: 048
     Dates: start: 20040913
  3. PACLITAXEL [Suspect]
     Indication: NON-SMALL CELL LUNG CANCER
     Dosage: 192 MG, TOTAL DOSE ADMINISTERED
     Dates: start: 20040714, end: 20040909
  4. CARBOPLATIN [Suspect]
     Indication: NON-SMALL CELL LUNG CANCER
     Dosage: 658 MG, TOTAL DOSE ADMINISTERED
     Dates: start: 20040714, end: 20040909
  5. RADIOTHERAPY (UNKNOWN) [Suspect]
     Indication: NON-SMALL CELL LUNG CANCER
     Dosage: 60 GY, OVER 6 WEEKS BETWEEN DAYS 43-50
  6. ATROVENT [Concomitant]

REACTIONS (8)
  - ARRHYTHMIA SUPRAVENTRICULAR [None]
  - ATRIAL FIBRILLATION [None]
  - ATRIAL FLUTTER [None]
  - DYSPNOEA [None]
  - HAEMOGLOBIN DECREASED [None]
  - PLEURAL EFFUSION [None]
  - PYREXIA [None]
  - SUPRAVENTRICULAR TACHYCARDIA [None]
